FAERS Safety Report 18131632 (Version 3)
Quarter: 2020Q3

REPORT INFORMATION
  Report Type: Spontaneous
  Country: US (occurrence: US)
  Receive Date: 20200810
  Receipt Date: 20200825
  Transmission Date: 20201103
  Serious: Yes (Other)
  Sender: FDA-Public Use
  Company Number: US-ACTELION-A-NJ2020-207620

PATIENT
  Age: 2 Year
  Sex: Female

DRUGS (6)
  1. SILDENAFIL. [Concomitant]
     Active Substance: SILDENAFIL
  2. ALDACTONE [Concomitant]
     Active Substance: SPIRONOLACTONE
  3. ENALAPRIL [Concomitant]
     Active Substance: ENALAPRIL
  4. ASA [Concomitant]
     Active Substance: ASPIRIN
  5. TORSEMIDE. [Concomitant]
     Active Substance: TORSEMIDE
  6. TRACLEER [Suspect]
     Active Substance: BOSENTAN
     Indication: PULMONARY ARTERIAL HYPERTENSION
     Dosage: 16 MG, BID
     Route: 048

REACTIONS (2)
  - Catheterisation cardiac [Recovered/Resolved]
  - Aortic stent insertion [Recovered/Resolved]

NARRATIVE: CASE EVENT DATE: 20200709
